FAERS Safety Report 7263656-4 (Version None)
Quarter: 2011Q1

REPORT INFORMATION
  Report Type: 
  Country: None (occurrence: None)
  Receive Date: 20110130
  Receipt Date: 20101206
  Transmission Date: 20110831
  Serious: No
  Sender: FDA-Public Use
  Company Number: US-ABBOTT-10P-163-0689734-00

PATIENT
  Age: 59 Year
  Sex: Female

DRUGS (11)
  1. ASA [Concomitant]
     Indication: PROPHYLAXIS
  2. ZOLOFT [Concomitant]
     Indication: DEPRESSION
  3. HUMIRA [Suspect]
     Indication: CROHN'S DISEASE
     Dates: start: 20100701
  4. AZATHIOPRINE [Concomitant]
     Indication: CROHN'S DISEASE
  5. ATENOLOL [Concomitant]
     Indication: BLOOD PRESSURE
  6. CALCIUM [Concomitant]
     Indication: PRODUCT USED FOR UNKNOWN INDICATION
  7. FISH OIL [Concomitant]
     Indication: PRODUCT USED FOR UNKNOWN INDICATION
  8. HYDROCHLOROTHIAZIDE [Concomitant]
     Indication: BLOOD PRESSURE
  9. TYLENOL-500 [Concomitant]
     Indication: PRODUCT USED FOR UNKNOWN INDICATION
  10. Q-10 [Concomitant]
     Indication: VITAMIN SUPPLEMENTATION
  11. MULTI-VITAMIN [Concomitant]
     Indication: PRODUCT USED FOR UNKNOWN INDICATION
     Dosage: DAILY

REACTIONS (1)
  - RHINORRHOEA [None]
